FAERS Safety Report 13561170 (Version 1)
Quarter: 2017Q2

REPORT INFORMATION
  Report Type: Spontaneous
  Country: FR (occurrence: FR)
  Receive Date: 20170518
  Receipt Date: 20170518
  Transmission Date: 20170830
  Serious: Yes (Other)
  Sender: FDA-Public Use
  Company Number: FR-ALLERGAN-1720193US

PATIENT
  Sex: Female

DRUGS (1)
  1. ESCITALOPRAM OXALATE - BP [Suspect]
     Active Substance: ESCITALOPRAM OXALATE
     Indication: PRODUCT USED FOR UNKNOWN INDICATION
     Dosage: UNK
     Dates: start: 201701, end: 20170205

REACTIONS (9)
  - Paraesthesia [Unknown]
  - Dyspnoea [Unknown]
  - Sputum abnormal [Unknown]
  - Dizziness [Unknown]
  - Surgery [Unknown]
  - Hot flush [Unknown]
  - Constipation [Unknown]
  - Lung infection [Unknown]
  - Dysstasia [Unknown]
